FAERS Safety Report 19818128 (Version 3)
Quarter: 2021Q4

REPORT INFORMATION
  Report Type: Spontaneous
  Country: US (occurrence: US)
  Receive Date: 20210911
  Receipt Date: 20211113
  Transmission Date: 20220304
  Serious: Yes (Other)
  Sender: FDA-Public Use
  Company Number: US-NOVARTISTESTPH-NVSC2021US203678

PATIENT
  Age: 80 Year
  Sex: Male

DRUGS (3)
  1. DOCETAXEL [Suspect]
     Active Substance: DOCETAXEL
     Indication: Prostate cancer metastatic
     Dosage: 7 CYCLES
     Route: 065
     Dates: start: 2020
  2. ENZALUTAMIDE [Suspect]
     Active Substance: ENZALUTAMIDE
     Indication: Prostate cancer metastatic
     Dosage: UNK
     Route: 065
     Dates: start: 2020
  3. RADIUM [Suspect]
     Active Substance: RADIUM
     Indication: Prostate cancer metastatic
     Dosage: UNK (223)
     Route: 065
     Dates: start: 2021

REACTIONS (4)
  - Prostate cancer metastatic [Unknown]
  - Malignant neoplasm progression [Unknown]
  - Bone cancer metastatic [Unknown]
  - Metastatic lymphoma [Unknown]
